FAERS Safety Report 10355718 (Version 2)
Quarter: 2014Q3

REPORT INFORMATION
  Report Type: Spontaneous
  Country: US (occurrence: US)
  Receive Date: 20140731
  Receipt Date: 20140731
  Transmission Date: 20150326
  Serious: Yes (Hospitalization, Other)
  Sender: FDA-Public Use
  Company Number: US-009507513-2009-200093-NL

PATIENT
  Sex: Female
  Weight: 66.23 kg

DRUGS (2)
  1. ORTHO EVRA [Concomitant]
     Active Substance: ETHINYL ESTRADIOL\NORELGESTROMIN
     Indication: CONTRACEPTION
     Dosage: APPLY 1 PATCH AS DIRECTED WEEKLY FOR 3 WEEKS FOLLOWED BY 1 PATCH FREE WEEK.
     Route: 062
     Dates: start: 20031114
  2. NUVARING [Suspect]
     Active Substance: ETHINYL ESTRADIOL\ETONOGESTREL
     Indication: CONTRACEPTION
     Dosage: 1 DF, UNK
     Route: 067
     Dates: start: 20040329, end: 20040712

REACTIONS (3)
  - Pulmonary embolism [Unknown]
  - Post thrombotic syndrome [Unknown]
  - Deep vein thrombosis [Unknown]

NARRATIVE: CASE EVENT DATE: 200406
